FAERS Safety Report 7955338-8 (Version None)
Quarter: 2011Q4

REPORT INFORMATION
  Report Type: 
  Country: None (occurrence: None)
  Receive Date: 20111202
  Receipt Date: 20111121
  Transmission Date: 20120403
  Serious: Yes (Hospitalization, Disabling, Other)
  Sender: FDA-Public Use
  Company Number: US-ELI_LILLY_AND_COMPANY-US201110003394

PATIENT
  Sex: Female

DRUGS (11)
  1. METOPROLOL TARTRATE [Concomitant]
  2. TRIAMTERENE [Concomitant]
  3. ASPIRIN [Concomitant]
  4. ACIPHEX [Concomitant]
  5. ZETIA [Concomitant]
  6. TRICOR [Concomitant]
  7. CALCIUM CITRATE W/VITAMIN D NOS [Concomitant]
  8. TOPAMAX [Concomitant]
  9. POTASSIUM ACETATE [Concomitant]
  10. FUROSEMIDE [Concomitant]
  11. EVISTA [Suspect]
     Indication: OSTEOPOROSIS
     Dosage: 60 MG, UNK
     Dates: start: 20090101

REACTIONS (2)
  - OVARIAN ADENOMA [None]
  - HAEMORRHAGIC STROKE [None]
